FAERS Safety Report 22390899 (Version 3)
Quarter: 2023Q2

REPORT INFORMATION
  Report Type: Spontaneous
  Country: US (occurrence: US)
  Receive Date: 20230601
  Receipt Date: 20230607
  Transmission Date: 20230722
  Serious: No
  Sender: FDA-Public Use
  Company Number: US-002147023-NVSC2023US122901

PATIENT
  Age: 58 Year

DRUGS (2)
  1. LEQVIO [Suspect]
     Active Substance: INCLISIRAN SODIUM
     Indication: Product used for unknown indication
     Dosage: UNK (DOSAGE: 284MG/1.5ML)
     Route: 030
     Dates: start: 20230519
  2. LEQVIO [Suspect]
     Active Substance: INCLISIRAN SODIUM
     Dosage: UNK (DOSAGE: 284MG/1.5ML)
     Route: 030
     Dates: start: 20230519

REACTIONS (2)
  - Ill-defined disorder [Not Recovered/Not Resolved]
  - Incorrect route of product administration [Unknown]
